FAERS Safety Report 7640774-X (Version None)
Quarter: 2011Q3

REPORT INFORMATION
  Report Type: 
  Country: None (occurrence: None)
  Receive Date: 20110728
  Receipt Date: 20110714
  Transmission Date: 20111222
  Serious: Yes (Other)
  Sender: FDA-Public Use
  Company Number: AU-ELI_LILLY_AND_COMPANY-AU201105003962

PATIENT
  Sex: Female

DRUGS (6)
  1. CYMBALTA [Suspect]
     Dosage: 180 MG, UNK
     Dates: start: 20110301
  2. CYMBALTA [Suspect]
     Dosage: 120 MG, UNK
  3. CYMBALTA [Suspect]
     Dosage: 150 MG, UNK
     Dates: start: 20100827
  4. OLANZAPINE [Suspect]
     Indication: DEPRESSION
     Dosage: 20 MG, EACH EVENING
     Dates: start: 20041208
  5. CYMBALTA [Suspect]
     Indication: DEPRESSION
     Dosage: UNK, UNKNOWN
  6. LEVOTHYROXINE SODIUM [Concomitant]
     Indication: HYPOTHYROIDISM
     Dosage: 100 UG, QD
     Dates: start: 20021112

REACTIONS (4)
  - HEART RATE INCREASED [None]
  - OVERDOSE [None]
  - ELECTROCARDIOGRAM QT PROLONGED [None]
  - OFF LABEL USE [None]
